FAERS Safety Report 4840236-9 (Version None)
Quarter: 2005Q4

REPORT INFORMATION
  Report Type: 
  Country: None (occurrence: None)
  Receive Date: 20051129
  Receipt Date: 20050824
  Transmission Date: 20060501
  Serious: Yes (Hospitalization)
  Sender: FDA-Public Use
  Company Number: US-MERCK-0508USA04337

PATIENT
  Age: 44 Year
  Sex: Female
  Weight: 118 kg

DRUGS (36)
  1. VIOXX [Suspect]
     Indication: MIGRAINE
     Route: 048
     Dates: start: 20000101, end: 20040901
  2. VIOXX [Suspect]
     Indication: ARTHRITIS
     Route: 048
     Dates: start: 20000101, end: 20040901
  3. MACROBID [Concomitant]
     Route: 065
  4. AUGMENTIN [Concomitant]
     Route: 065
  5. CIPRO [Concomitant]
     Route: 065
  6. CLONIDINE [Concomitant]
     Indication: HYPERTENSION
     Route: 065
     Dates: start: 20000101, end: 20000101
  7. PROZAC [Concomitant]
     Indication: DEPRESSION
     Route: 065
  8. WELLBUTRIN [Concomitant]
     Indication: DEPRESSION
     Route: 065
  9. ALLEGRA [Concomitant]
     Indication: SEASONAL ALLERGY
     Route: 065
  10. ZITHROMAX [Concomitant]
     Route: 065
  11. BENZONATATE [Concomitant]
     Route: 065
  12. NORMODYNE [Concomitant]
     Indication: HYPERTENSION
     Route: 065
     Dates: start: 19990101, end: 20041101
  13. DURICEF [Concomitant]
     Route: 065
  14. LORATADINE [Concomitant]
     Indication: SEASONAL ALLERGY
     Route: 065
  15. LASIX [Concomitant]
     Indication: FLUID RETENTION
     Route: 065
     Dates: start: 20000101, end: 20000101
  16. XANAX [Concomitant]
     Indication: ANXIETY
     Route: 065
  17. HYDROCHLOROTHIAZIDE [Concomitant]
     Indication: FLUID RETENTION
     Route: 065
     Dates: start: 20000101, end: 20040801
  18. LEVAQUIN [Concomitant]
     Route: 065
  19. TUSSI-12 [Concomitant]
     Route: 065
  20. CORDRAN [Concomitant]
     Route: 065
  21. ROXICET [Concomitant]
     Route: 065
     Dates: start: 20000101
  22. ASPIRIN [Concomitant]
     Indication: ARTHRITIS
     Route: 065
     Dates: start: 19920101, end: 20001201
  23. ASPIRIN [Concomitant]
     Route: 065
     Dates: start: 20001201
  24. NEURONTIN [Concomitant]
     Route: 065
  25. FLONASE [Concomitant]
     Indication: SEASONAL ALLERGY
     Route: 065
  26. PATANOL [Concomitant]
     Route: 065
  27. AMOXICILLIN [Concomitant]
     Route: 065
  28. ACCUPRIL [Concomitant]
     Indication: HYPERTENSION
     Route: 065
     Dates: start: 20000101
  29. CILOXAN [Concomitant]
     Route: 065
  30. CELEXA [Concomitant]
     Indication: DEPRESSION
     Route: 065
  31. CLARINEX [Concomitant]
     Indication: SEASONAL ALLERGY
     Route: 065
  32. EFFEXOR [Concomitant]
     Indication: DEPRESSION
     Route: 065
  33. ADVIL [Concomitant]
     Indication: PAIN
     Route: 065
     Dates: start: 19970101, end: 20000101
  34. MOTRIN [Concomitant]
     Indication: PAIN
     Route: 065
     Dates: start: 19970101, end: 20000101
  35. TYLENOL [Concomitant]
     Indication: PAIN
     Route: 065
     Dates: start: 19970101
  36. ZOCOR [Concomitant]
     Indication: BLOOD CHOLESTEROL INCREASED
     Route: 065
     Dates: start: 19990101, end: 20000901

REACTIONS (13)
  - ANAEMIA POSTOPERATIVE [None]
  - ANGINA PECTORIS [None]
  - CEREBRAL INFARCTION [None]
  - CEREBROVASCULAR DISORDER [None]
  - CHEST PAIN [None]
  - CORONARY ARTERY DISEASE [None]
  - HAEMATURIA [None]
  - HERPES SIMPLEX [None]
  - HYPERLIPIDAEMIA [None]
  - OBESITY [None]
  - OSTEOARTHRITIS [None]
  - SLEEP APNOEA SYNDROME [None]
  - URINARY TRACT INFECTION [None]
